FAERS Safety Report 5237737-0 (Version None)
Quarter: 2007Q1

REPORT INFORMATION
  Report Type: 
  Country: None (occurrence: None)
  Receive Date: 20070214
  Receipt Date: 20070201
  Transmission Date: 20070707
  Serious: Yes (Hospitalization, Disabling, Other)
  Sender: FDA-Public Use
  Company Number: US-BRISTOL-MYERS SQUIBB COMPANY-13614409

PATIENT
  Age: 70 Year
  Sex: Female
  Weight: 67 kg

DRUGS (5)
  1. ORENCIA [Suspect]
     Indication: RHEUMATOID ARTHRITIS
     Dates: start: 20061019
  2. ASPIRIN [Concomitant]
  3. BUMEX [Concomitant]
  4. ZYRTEC [Concomitant]
  5. METHOTREXATE [Concomitant]

REACTIONS (1)
  - MYASTHENIA GRAVIS [None]
